FAERS Safety Report 11283248 (Version 1)
Quarter: 2015Q3

REPORT INFORMATION
  Report Type: Spontaneous
  Country: GB (occurrence: GB)
  Receive Date: 20150720
  Receipt Date: 20150720
  Transmission Date: 20151125
  Serious: Yes (Disabling, Other)
  Sender: FDA-Public Use
  Company Number: GB-TEVA-577808ACC

PATIENT
  Age: 47 Year
  Sex: Female
  Weight: 68.94 kg

DRUGS (6)
  1. EPIRUBICIN [Suspect]
     Active Substance: EPIRUBICIN
     Indication: BREAST CANCER FEMALE
     Dosage: 3 CYCLES.
     Dates: end: 20140724
  2. TAXOTERE [Suspect]
     Active Substance: DOCETAXEL
     Indication: BREAST CANCER FEMALE
     Dosage: 3 CYCLES.
     Route: 048
     Dates: start: 20130529, end: 20140724
  3. CITALOPRAM [Concomitant]
     Active Substance: CITALOPRAM HYDROBROMIDE
  4. CYCLOPHOSPHAMIDE. [Suspect]
     Active Substance: CYCLOPHOSPHAMIDE
     Indication: BREAST CANCER FEMALE
     Dosage: 3 CYCLES.
     Dates: end: 20140724
  5. 5-FU [Suspect]
     Active Substance: FLUOROURACIL
     Indication: BREAST CANCER FEMALE
     Dosage: 3 CYCLES.
     Dates: end: 20140724
  6. LANSOPRAZOL [Concomitant]
     Active Substance: LANSOPRAZOLE

REACTIONS (2)
  - Neuropathy peripheral [Recovered/Resolved]
  - Alopecia [Not Recovered/Not Resolved]

NARRATIVE: CASE EVENT DATE: 20130529
